FAERS Safety Report 14393477 (Version 1)
Quarter: 2018Q1

REPORT INFORMATION
  Report Type: Spontaneous
  Country: GB (occurrence: GB)
  Receive Date: 20180115
  Receipt Date: 20180115
  Transmission Date: 20180509
  Serious: Yes (Life-Threatening, Hospitalization, Disabling)
  Sender: FDA-Public Use
  Company Number: None

PATIENT
  Age: 45 Year
  Sex: Female
  Weight: 63 kg

DRUGS (4)
  1. ANTIHISTAMINES [Concomitant]
     Active Substance: ANTIHISTAMINES NOS
  2. PARACETAMOL [Concomitant]
     Active Substance: ACETAMINOPHEN
  3. BETNOVATE [Suspect]
     Active Substance: BETAMETHASONE
     Indication: ECZEMA
  4. GABAPENTIN. [Concomitant]
     Active Substance: GABAPENTIN

REACTIONS (3)
  - Steroid withdrawal syndrome [None]
  - Hospitalisation [None]
  - Decreased activity [None]
